FAERS Safety Report 5266711-3 (Version None)
Quarter: 2007Q1

REPORT INFORMATION
  Report Type: 
  Country: None (occurrence: None)
  Receive Date: 20070312
  Receipt Date: 20070227
  Transmission Date: 20070707
  Serious: Yes (Hospitalization)
  Sender: FDA-Public Use
  Company Number: 02100-EUR-07-0027

PATIENT
  Sex: Male

DRUGS (1)
  1. CILOSTAZOL [Suspect]
     Dosage: NI ORAL
     Route: 048

REACTIONS (2)
  - CARDIOVASCULAR DISORDER [None]
  - INTESTINAL INFARCTION [None]
